FAERS Safety Report 4561062-4 (Version None)
Quarter: 2005Q1

REPORT INFORMATION
  Report Type: 
  Country: None (occurrence: None)
  Receive Date: 20050126
  Receipt Date: 20041014
  Transmission Date: 20050727
  Serious: No
  Sender: FDA-Public Use
  Company Number: US-BRISTOL-MYERS SQUIBB COMPANY-12732848

PATIENT
  Age: 65 Year
  Sex: Male
  Weight: 107 kg

DRUGS (6)
  1. GLUCOPHAGE XR [Suspect]
     Indication: DIABETES MELLITUS
     Route: 048
  2. GLUCOPHAGE [Suspect]
     Indication: DIABETES MELLITUS
     Dosage: DURATION OF THERAPY: 3-4 YEARS
     Route: 048
  3. ACCUPRIL [Concomitant]
  4. DYAZIDE [Concomitant]
  5. LIPITOR [Concomitant]
  6. GLIPIZIDE [Concomitant]

REACTIONS (1)
  - DIARRHOEA [None]
